FAERS Safety Report 18826494 (Version 1)
Quarter: 2021Q1

REPORT INFORMATION
  Report Type: Spontaneous
  Country: US (occurrence: US)
  Receive Date: 20210202
  Receipt Date: 20210202
  Transmission Date: 20210419
  Serious: Yes (Other)
  Sender: FDA-Public Use
  Company Number: US-TEVA-2021-US-1873797

PATIENT
  Sex: Male

DRUGS (1)
  1. PRAVASTATIN SODIUM. [Suspect]
     Active Substance: PRAVASTATIN SODIUM
     Dosage: DOSE INCREASE TO 20 MG
     Route: 065

REACTIONS (4)
  - Diarrhoea [Unknown]
  - Gluten sensitivity [Unknown]
  - Pancreatic operation [Unknown]
  - Therapy change [Unknown]
